FAERS Safety Report 25136474 (Version 1)
Quarter: 2025Q1

REPORT INFORMATION
  Report Type: Spontaneous
  Country: BR (occurrence: BR)
  Receive Date: 20250328
  Receipt Date: 20250328
  Transmission Date: 20250409
  Serious: Yes (Other)
  Sender: BAYER HEALTHCARE PHARMACEUTICALS INC.
  Company Number: BR-BAYER-2025A041091

PATIENT
  Sex: Male

DRUGS (1)
  1. NEXAVAR [Suspect]
     Active Substance: SORAFENIB
     Indication: Hepatic cancer
     Dosage: 160 MG, QD FOR 21 DAYS, FOLLOWED BY A 7-DAY BREAK ,THEN RESUME.

REACTIONS (2)
  - Hepatic cancer [Not Recovered/Not Resolved]
  - Product use issue [None]
